FAERS Safety Report 8363694-4 (Version None)
Quarter: 2012Q2

REPORT INFORMATION
  Report Type: 
  Country: None (occurrence: None)
  Receive Date: 20120516
  Receipt Date: 20120504
  Transmission Date: 20120825
  Serious: Yes (Death)
  Sender: FDA-Public Use
  Company Number: RU-JNJFOC-20120506510

PATIENT
  Age: 60 Year
  Sex: Male

DRUGS (3)
  1. ISONIAZID [Concomitant]
     Indication: TUBERCULOSIS
     Route: 065
     Dates: start: 20090101, end: 20120101
  2. REMICADE [Suspect]
     Indication: ANKYLOSING SPONDYLITIS
     Dosage: PATIENT HAD RECEIVED A TOTAL OF 28 INJECTIONS
     Route: 042
     Dates: start: 20060622, end: 20120320
  3. REMICADE [Suspect]
     Indication: RHEUMATOID ARTHRITIS
     Dosage: PATIENT HAD RECEIVED A TOTAL OF 28 INJECTIONS
     Route: 042
     Dates: start: 20060622, end: 20120320

REACTIONS (2)
  - PNEUMONIA BACTERIAL [None]
  - TUBERCULIN TEST POSITIVE [None]
